FAERS Safety Report 5947938-1 (Version None)
Quarter: 2008Q4

REPORT INFORMATION
  Report Type: 
  Country: None (occurrence: None)
  Receive Date: 20081111
  Receipt Date: 20080919
  Transmission Date: 20090506
  Serious: No
  Sender: FDA-Public Use
  Company Number: A0748398A

PATIENT
  Age: 54 Year
  Sex: Female

DRUGS (6)
  1. TREXIMET [Suspect]
     Indication: MIGRAINE
     Dosage: 2TAB SINGLE DOSE
     Route: 048
     Dates: start: 20080918
  2. IMITREX [Suspect]
     Indication: MIGRAINE
     Route: 048
     Dates: start: 20060101
  3. IMITREX [Suspect]
     Route: 058
     Dates: start: 19980101
  4. LEXAPRO [Concomitant]
  5. CLONAZEPAM [Concomitant]
  6. TOPAMAX [Concomitant]

REACTIONS (6)
  - ABDOMINAL PAIN UPPER [None]
  - DIZZINESS [None]
  - DRUG INEFFECTIVE [None]
  - FATIGUE [None]
  - FEELING ABNORMAL [None]
  - SOMNOLENCE [None]
